FAERS Safety Report 7593122-8 (Version None)
Quarter: 2011Q3

REPORT INFORMATION
  Report Type: 
  Country: None (occurrence: None)
  Receive Date: 20110706
  Receipt Date: 20110131
  Transmission Date: 20111222
  Serious: Yes (Hospitalization, Other)
  Sender: FDA-Public Use
  Company Number: US-BAYER-201035991NA

PATIENT
  Age: 26 Year
  Sex: Female
  Weight: 70.295 kg

DRUGS (8)
  1. DROSPIRENONE AND ETHINYL ESTRADIOL [Suspect]
     Indication: CONTRACEPTION
     Route: 048
     Dates: start: 20080301, end: 20090101
  2. DROSPIRENONE AND ETHINYL ESTRADIOL [Suspect]
     Dosage: UNK
     Dates: start: 20080801, end: 20090101
  3. YASMIN [Suspect]
     Indication: CONTRACEPTION
     Route: 048
     Dates: start: 20080301, end: 20090101
  4. PROZAC [Concomitant]
  5. OMEPRAZOLE [Concomitant]
     Dosage: DAILY
  6. YASMIN [Suspect]
     Dosage: UNK
     Dates: start: 20080301, end: 20080701
  7. YAZ [Suspect]
     Indication: PRODUCT USED FOR UNKNOWN INDICATION
     Route: 048
     Dates: start: 20080301, end: 20090101
  8. ALBUTEROL SULFATE AUTOHALER [Concomitant]
     Dosage: UNK UNK, PRN

REACTIONS (6)
  - POST PROCEDURAL HAEMORRHAGE [None]
  - CHOLECYSTITIS [None]
  - CHOLECYSTECTOMY [None]
  - CHOLELITHIASIS [None]
  - GALLBLADDER INJURY [None]
  - PAIN [None]
